FAERS Safety Report 18985006 (Version 8)
Quarter: 2022Q2

REPORT INFORMATION
  Report Type: Report from Study
  Country: GB (occurrence: GB)
  Receive Date: 20210309
  Receipt Date: 20220521
  Transmission Date: 20220721
  Serious: Yes (Other)
  Sender: FDA-Public Use
  Company Number: None

PATIENT
  Age: 52 Year
  Sex: Female

DRUGS (41)
  1. DOCETAXEL [Suspect]
     Active Substance: DOCETAXEL
     Indication: Product used for unknown indication
     Dosage: 180 MG, TIW
     Route: 042
     Dates: start: 20151231, end: 20160212
  2. LETROZOLE [Suspect]
     Active Substance: LETROZOLE
     Indication: Product used for unknown indication
     Route: 048
     Dates: start: 20160407
  3. ABRAXANE [Suspect]
     Active Substance: PACLITAXEL
     Indication: Product used for unknown indication
     Dosage: 111 MG, TIW
     Route: 042
     Dates: start: 20160311, end: 20160324
  4. TRASTUZUMAB [Suspect]
     Active Substance: TRASTUZUMAB
     Indication: Breast cancer metastatic
     Route: 058
     Dates: start: 20151231
  5. ALBUTEROL [Concomitant]
     Active Substance: ALBUTEROL
     Dosage: 2 PUFF AS NEEDED.
     Route: 065
     Dates: start: 20000418
  6. SYMBICORT [Concomitant]
     Active Substance: BUDESONIDE\FORMOTEROL FUMARATE DIHYDRATE
     Route: 055
     Dates: start: 20190720
  7. SYSTANE (HYPROMELLOSE 2910 (4000 MPA.S)) [Concomitant]
     Active Substance: HYPROMELLOSE 2910 (4000 MPA.S)
     Dosage: AS NEEDED
     Route: 047
  8. TEA TREE OIL [Concomitant]
     Active Substance: TEA TREE OIL
     Dosage: AS NEEDED
     Route: 047
     Dates: start: 20191029, end: 20191031
  9. ACYCLOVIR [Concomitant]
     Active Substance: ACYCLOVIR
     Dosage: 0.5 OT, QD
     Route: 048
     Dates: start: 20190606, end: 20190627
  10. CARBOMER [Concomitant]
     Active Substance: CARBOMER
     Dosage: AS NEEDED
     Route: 047
     Dates: start: 20160706
  11. CETIRIZINE [Concomitant]
     Active Substance: CETIRIZINE HYDROCHLORIDE
     Dosage: DAILY AS NEEDED
     Route: 048
     Dates: start: 20170911
  12. CLOBETASONE [Concomitant]
     Active Substance: CLOBETASONE
     Route: 061
  13. COCODAMOL [Concomitant]
     Active Substance: ACETAMINOPHEN\CODEINE PHOSPHATE
     Dosage: AS NEEDED
     Route: 048
     Dates: start: 20190719
  14. DEXAMETHASONE SODIUM PHOSPHATE [Concomitant]
     Active Substance: DEXAMETHASONE SODIUM PHOSPHATE
     Route: 047
     Dates: start: 20191127
  15. ESTRIOL [Concomitant]
     Active Substance: ESTRIOL
     Dosage: 0.1% CREAM AS NEEDED.?2-3 WEEKS
     Route: 067
     Dates: start: 20150415
  16. EUCALYPTUS OIL [Concomitant]
     Active Substance: EUCALYPTUS OIL
     Route: 061
     Dates: start: 20191219, end: 20191219
  17. EUMOVATE [Concomitant]
     Active Substance: CLOBETASONE BUTYRATE
     Dosage: AS NEEDED, 1 DF, QMO (AS NEEDED)
     Route: 061
     Dates: start: 201904, end: 20190502
  18. EURAX [Concomitant]
     Active Substance: CROTAMITON
     Dosage: AS NEEDED
     Route: 061
     Dates: start: 20190516, end: 201906
  19. FEXOFENADINE [Concomitant]
     Active Substance: FEXOFENADINE HYDROCHLORIDE
     Dosage: AS NEEDED
     Route: 048
     Dates: start: 20190516
  20. HYPROMELLOSES [Concomitant]
     Active Substance: HYPROMELLOSES
     Route: 065
     Dates: start: 20160831
  21. LOPERAMIDE [Concomitant]
     Active Substance: LOPERAMIDE
     Indication: Diarrhoea
     Dosage: 1 CAPSULE AS NEEDED., ALSO FROM 19-JUN-2020
     Route: 048
     Dates: start: 20150415
  22. MOMETASONE [Concomitant]
     Active Substance: MOMETASONE
     Dosage: 2 PUFF QD.
     Route: 065
     Dates: start: 20120925
  23. OMEPRAZOLE [Concomitant]
     Active Substance: OMEPRAZOLE
     Indication: Prophylaxis
     Route: 048
     Dates: start: 20160212
  24. ACETAMINOPHEN [Concomitant]
     Active Substance: ACETAMINOPHEN
     Dosage: AS NEEDED
     Route: 048
     Dates: start: 2017
  25. PARAFFIN [Concomitant]
     Active Substance: PARAFFIN
     Dosage: AS NEEDED
     Route: 061
     Dates: start: 20180403
  26. PEPPERMINT OIL [Concomitant]
     Active Substance: PEPPERMINT OIL
     Route: 061
     Dates: start: 20191219, end: 20191219
  27. CHLORPHENIRAMINE MALEATE [Concomitant]
     Active Substance: CHLORPHENIRAMINE MALEATE
     Route: 048
     Dates: start: 20170503, end: 20170503
  28. EVENING PRIMROSE OIL\HERBALS [Concomitant]
     Active Substance: EVENING PRIMROSE OIL\HERBALS
     Dosage: UNK UNK, QD
     Route: 048
     Dates: start: 2017
  29. BENZYDAMINE [Concomitant]
     Active Substance: BENZYDAMINE
     Dates: start: 20200710
  30. CHLORHEXIDINE [Concomitant]
     Active Substance: CHLORHEXIDINE
     Dates: start: 20200710
  31. HYALURONATE SODIUM [Concomitant]
     Active Substance: HYALURONATE SODIUM
     Dosage: AS NEEDED, ALSO FROM 29-OCT-2019
     Route: 061
     Dates: start: 20180226
  32. HYDROCORTISONE [Concomitant]
     Active Substance: HYDROCORTISONE
     Route: 002
     Dates: start: 20200710
  33. LAVENDER OIL [Concomitant]
     Active Substance: LAVENDER OIL
     Route: 061
     Dates: start: 20200117, end: 20200117
  34. METOCLOPRAMIDE [Concomitant]
     Active Substance: METOCLOPRAMIDE
     Route: 048
     Dates: start: 20200619
  35. NITROFURANTOIN [Concomitant]
     Active Substance: NITROFURANTOIN
     Route: 048
     Dates: start: 20200407, end: 20200410
  36. LOPERAMIDE [Concomitant]
     Active Substance: LOPERAMIDE
     Dosage: DOSE: 2
     Route: 048
     Dates: start: 20200619
  37. MINERAL OIL [Concomitant]
     Active Substance: MINERAL OIL
     Dosage: AS NEEDED
     Route: 061
     Dates: start: 20180403
  38. WOOL FAT [Concomitant]
     Dosage: AS NEEDED
     Route: 061
     Dates: start: 20180403
  39. PARAFFIN [Concomitant]
     Active Substance: PARAFFIN
     Dosage: AS NEEDED
     Route: 061
     Dates: start: 20180403
  40. UNSPECIFIED INGREDIENT [Concomitant]
     Active Substance: UNSPECIFIED INGREDIENT
     Dosage: AS NEEDED
     Route: 047
  41. ASCORBIC ACID [Concomitant]
     Active Substance: ASCORBIC ACID
     Indication: Product used for unknown indication
     Route: 065

REACTIONS (10)
  - Skin ulcer [Recovered/Resolved]
  - Mass [Recovered/Resolved]
  - Abdominal pain [Recovered/Resolved]
  - Pain [Recovered/Resolved]
  - Alopecia [Recovered/Resolved]
  - Extravasation [Recovered/Resolved]
  - Neuropathy peripheral [Recovered/Resolved]
  - Nail disorder [Unknown]
  - Fatigue [Recovered/Resolved]
  - Nausea [Recovered/Resolved]

NARRATIVE: CASE EVENT DATE: 20160211
